FAERS Safety Report 9419491 (Version 1)
Quarter: 2013Q3

REPORT INFORMATION
  Report Type: Spontaneous
  Country: FR (occurrence: FR)
  Receive Date: 20130725
  Receipt Date: 20130725
  Transmission Date: 20140515
  Serious: Yes (Death)
  Sender: FDA-Public Use
  Company Number: FR-TEVA-421356ISR

PATIENT
  Age: 88 Year
  Sex: Male

DRUGS (9)
  1. FUROSEMIDE TEVA 40 MG, COMPRIM? S?CABLE [Suspect]
     Dosage: 80 MILLIGRAM DAILY;
     Route: 048
     Dates: end: 20130610
  2. RAMIPRIL [Suspect]
     Dosage: 3.75 MILLIGRAM DAILY;
     Route: 048
     Dates: end: 20130613
  3. CARBOCISTEINE [Suspect]
     Route: 048
     Dates: end: 20130613
  4. FUROSEMIDE SANDOZ 40 MG, COMPRIM? S?CABLE [Suspect]
     Route: 048
     Dates: start: 20130610, end: 20130613
  5. DUROGESIC [Suspect]
     Dosage: 25 MICROGRAM 1 IN 72 HOURS
     Route: 062
     Dates: start: 20130530, end: 20130613
  6. SERESTA 50 MG, COMPRIM? S?CABLE [Suspect]
     Dosage: 50 MILLIGRAM DAILY;
     Route: 048
     Dates: end: 20130613
  7. IMPORTAL [Suspect]
     Route: 048
     Dates: end: 20130613
  8. KARDEGIC [Suspect]
     Route: 048
     Dates: end: 20130613
  9. DOLIPRANE [Suspect]
     Route: 048
     Dates: end: 20130613

REACTIONS (1)
  - Death [Fatal]
